FAERS Safety Report 9544127 (Version 1)
Quarter: 2013Q2

REPORT INFORMATION
  Report Type: Spontaneous
  Country: US (occurrence: None)
  Receive Date: 20130524
  Receipt Date: 20130524
  Transmission Date: 20140414
  Serious: Yes (Other)
  Sender: FDA-Public Use
  Company Number: PHEH2013US001823

PATIENT
  Age: 30 Year
  Sex: Female

DRUGS (1)
  1. GILENYA [Suspect]
     Indication: MULTIPLE SCLEROSIS
     Route: 048
     Dates: start: 20121228

REACTIONS (6)
  - Multiple sclerosis relapse [None]
  - Dizziness postural [None]
  - Dizziness [None]
  - Diarrhoea [None]
  - Central nervous system lesion [None]
  - Hypoaesthesia [None]
